FAERS Safety Report 5083908-6 (Version None)
Quarter: 2006Q3

REPORT INFORMATION
  Report Type: 
  Country: None (occurrence: None)
  Receive Date: 20060727
  Receipt Date: 20060512
  Transmission Date: 20061208
  Serious: Yes (Other)
  Sender: FDA-Public Use
  Company Number: 2006051380

PATIENT
  Age: 35 Year
  Sex: Female

DRUGS (10)
  1. LYRICA [Suspect]
     Indication: BACK PAIN
     Dosage: (50 MG, 2 IN 1 D)
     Dates: start: 20060327, end: 20060410
  2. LYRICA [Suspect]
     Indication: RADICULOPATHY
     Dosage: (50 MG, 2 IN 1 D)
     Dates: start: 20060327, end: 20060410
  3. ALL OTHER THERAPEUTIC PRODUCTS (ALL OTHER THERAPEUTIC PRODUCTS) [Concomitant]
  4. CIPROFLOXACIN [Concomitant]
  5. KEFLEX [Concomitant]
  6. TORADOL [Concomitant]
  7. TOPAMAX [Concomitant]
  8. BIAXIN [Concomitant]
  9. IMITREX [Concomitant]
  10. LEVAQUIN [Concomitant]

REACTIONS (1)
  - BLISTER [None]
